FAERS Safety Report 20815977 (Version 1)
Quarter: 2022Q2

REPORT INFORMATION
  Report Type: Spontaneous
  Country: US (occurrence: US)
  Receive Date: 20220511
  Receipt Date: 20220511
  Transmission Date: 20220721
  Serious: No
  Sender: FDA-Public Use
  Company Number: US-HORIZON THERAPEUTICS-HZN-2022-001091

PATIENT
  Age: 90 Year
  Sex: Female

DRUGS (1)
  1. DUEXIS [Suspect]
     Active Substance: FAMOTIDINE\IBUPROFEN
     Indication: Osteoarthritis
     Dosage: DOSAGE: 800MG/26.6MG, THREE TIMES AS NEEDED
     Route: 048

REACTIONS (11)
  - Therapeutic response unexpected [Unknown]
  - Ear infection [Unknown]
  - Hypoacusis [Recovering/Resolving]
  - Cerebral disorder [Unknown]
  - Pain [Unknown]
  - Fall [Unknown]
  - Burns second degree [Unknown]
  - Burning sensation [Unknown]
  - Coordination abnormal [Unknown]
  - Back disorder [Unknown]
  - Insomnia [Unknown]

NARRATIVE: CASE EVENT DATE: 20220201
